FAERS Safety Report 21797577 (Version 2)
Quarter: 2023Q1

REPORT INFORMATION
  Report Type: Report from Study
  Country: US (occurrence: US)
  Receive Date: 20221230
  Receipt Date: 20230202
  Transmission Date: 20230418
  Serious: No
  Sender: FDA-Public Use
  Company Number: US-ABBVIE-4219954

PATIENT
  Age: 44 Year
  Sex: Female

DRUGS (2)
  1. HUMIRA [Suspect]
     Active Substance: ADALIMUMAB
     Indication: Psoriatic arthropathy
     Route: 058
     Dates: start: 20210303
  2. HUMIRA [Suspect]
     Active Substance: ADALIMUMAB
     Route: 058

REACTIONS (6)
  - Psoriatic arthropathy [Not Recovered/Not Resolved]
  - Pneumocystis jirovecii pneumonia [Unknown]
  - Sinus pain [Unknown]
  - Therapeutic response shortened [Not Recovered/Not Resolved]
  - Urinary tract infection [Unknown]
  - Dry skin [Unknown]

NARRATIVE: CASE EVENT DATE: 20221210
